FAERS Safety Report 18060903 (Version 3)
Quarter: 2020Q3

REPORT INFORMATION
  Report Type: Spontaneous
  Country: US (occurrence: US)
  Receive Date: 20200723
  Receipt Date: 20200831
  Transmission Date: 20201103
  Serious: Yes (Death, Other)
  Sender: FDA-Public Use
  Company Number: US-GILEAD-2020-0481121

PATIENT
  Age: 0 Day
  Sex: Male

DRUGS (1)
  1. TRUVADA [Suspect]
     Active Substance: EMTRICITABINE\TENOFOVIR DISOPROXIL FUMARATE
     Indication: PROPHYLAXIS AGAINST HIV INFECTION
     Dosage: UNK
     Route: 064
     Dates: start: 20180309, end: 20180915

REACTIONS (6)
  - End stage renal disease [Not Recovered/Not Resolved]
  - Renal dysplasia [Not Recovered/Not Resolved]
  - Blood creatinine increased [Unknown]
  - Renal disorder [Fatal]
  - Renal failure [Not Recovered/Not Resolved]
  - Foetal exposure during pregnancy [Recovered/Resolved]

NARRATIVE: CASE EVENT DATE: 20180915
